FAERS Safety Report 8884027 (Version 1)
Quarter: 2012Q4

REPORT INFORMATION
  Report Type: 
  Country: DE (occurrence: DE)
  Receive Date: 20121102
  Receipt Date: 20121102
  Transmission Date: 20130627
  Serious: Yes (Hospitalization)
  Sender: FDA-Public Use
  Company Number: DE-ELI_LILLY_AND_COMPANY-DE201210007701

PATIENT
  Sex: Female

DRUGS (4)
  1. FORSTEO [Suspect]
     Indication: OSTEOPOROSIS
     Dosage: UNK, qd
     Route: 058
     Dates: start: 20120327
  2. L-THYROXIN [Concomitant]
  3. SPIRIVA [Concomitant]
     Dosage: UNK
  4. RAMIPRIL [Concomitant]

REACTIONS (1)
  - Thyroid neoplasm [Unknown]
